FAERS Safety Report 6453547-0 (Version None)
Quarter: 2009Q4

REPORT INFORMATION
  Report Type: 
  Country: None (occurrence: None)
  Receive Date: 20091124
  Receipt Date: 20091111
  Transmission Date: 20100525
  Serious: Yes (Other)
  Sender: FDA-Public Use
  Company Number: US-BRACCO-003062

PATIENT
  Age: 47 Year
  Sex: Male

DRUGS (6)
  1. CONTRAST MEDIA [Suspect]
     Indication: ARTHROGRAM
     Route: 065
     Dates: start: 20050912, end: 20050912
  2. CONTRAST MEDIA [Suspect]
     Indication: NUCLEAR MAGNETIC RESONANCE IMAGING
     Dates: start: 20051004, end: 20051004
  3. CONTRAST MEDIA [Suspect]
     Route: 065
     Dates: start: 20050826, end: 20050826
  4. NORMAL SALINE [Concomitant]
     Dates: start: 20051004, end: 20051004
  5. PANTOPAQUE [Concomitant]
     Indication: SCAN
  6. MULTIHANCE [Suspect]
     Indication: NUCLEAR MAGNETIC RESONANCE IMAGING
     Route: 042
     Dates: start: 20080220, end: 20080220

REACTIONS (3)
  - JOINT SWELLING [None]
  - RENAL DISORDER [None]
  - SKIN HYPERTROPHY [None]
